FAERS Safety Report 14359258 (Version 1)
Quarter: 2018Q1

REPORT INFORMATION
  Report Type: Spontaneous
  Country: US (occurrence: US)
  Receive Date: 20180105
  Receipt Date: 20180105
  Transmission Date: 20180509
  Serious: Yes (Hospitalization, Other)
  Sender: FDA-Public Use
  Company Number: US-ALLERGAN-1800436US

PATIENT
  Age: 63 Year
  Sex: Male

DRUGS (13)
  1. FINASTERIDE. [Concomitant]
     Active Substance: FINASTERIDE
     Route: 065
  2. FLUTICASONE. [Concomitant]
     Active Substance: FLUTICASONE
     Route: 045
  3. DESLORATADINE. [Concomitant]
     Active Substance: DESLORATADINE
     Route: 065
  4. ASACOL [Suspect]
     Active Substance: MESALAMINE
     Indication: PRODUCT USED FOR UNKNOWN INDICATION
     Route: 065
  5. ADVAIR HFA [Suspect]
     Active Substance: FLUTICASONE PROPIONATE\SALMETEROL XINAFOATE
     Indication: ASTHMA
     Route: 055
  6. ALPRAZOLAM. [Concomitant]
     Active Substance: ALPRAZOLAM
     Route: 065
  7. VITAMIN D3 [Concomitant]
     Active Substance: CHOLECALCIFEROL
     Route: 065
  8. METOPROLOL SUCCINATE. [Concomitant]
     Active Substance: METOPROLOL SUCCINATE
     Route: 065
  9. VITAMIN B12 [Concomitant]
     Active Substance: CYANOCOBALAMIN
     Route: 065
  10. ADVAIR HFA [Suspect]
     Active Substance: FLUTICASONE PROPIONATE\SALMETEROL XINAFOATE
     Indication: ASTHMA
     Dosage: 1 DF, BID
     Route: 055
     Dates: start: 2003
  11. TAMSULOSIN [Concomitant]
     Active Substance: TAMSULOSIN
     Route: 065
  12. DIGOXIN. [Concomitant]
     Active Substance: DIGOXIN
     Route: 065
  13. DEXILANT [Concomitant]
     Active Substance: DEXLANSOPRAZOLE
     Route: 065

REACTIONS (6)
  - Drug hypersensitivity [Unknown]
  - Syncope [Recovered/Resolved]
  - Chest pain [Recovered/Resolved]
  - Rectal haemorrhage [Recovered/Resolved]
  - Vertigo [Recovered/Resolved]
  - Ulcer [Recovered/Resolved]

NARRATIVE: CASE EVENT DATE: 201606
